FAERS Safety Report 21968290 (Version 1)
Quarter: 2023Q1

REPORT INFORMATION
  Report Type: Spontaneous
  Country: US (occurrence: US)
  Receive Date: 20230208
  Receipt Date: 20230208
  Transmission Date: 20230417
  Serious: No
  Sender: FDA-Public Use
  Company Number: US-BAYER-2023A010055

PATIENT
  Age: 65 Year
  Sex: Male

DRUGS (2)
  1. NUBEQA [Interacting]
     Active Substance: DAROLUTAMIDE
  2. ALLOPURINOL [Interacting]
     Active Substance: ALLOPURINOL

REACTIONS (5)
  - Myalgia [None]
  - Insomnia [None]
  - Asthenia [None]
  - Intentional dose omission [None]
  - Drug interaction [None]

NARRATIVE: CASE EVENT DATE: 20230121
